FAERS Safety Report 7450426-7 (Version None)
Quarter: 2011Q2

REPORT INFORMATION
  Report Type: 
  Country: None (occurrence: None)
  Receive Date: 20110429
  Receipt Date: 20110429
  Transmission Date: 20111010
  Serious: Yes (Hospitalization)
  Sender: FDA-Public Use
  Company Number: None

PATIENT
  Age: 88 Year
  Sex: Male
  Weight: 101 kg

DRUGS (2)
  1. FEBUXOSTAT [Suspect]
     Indication: PAIN IN EXTREMITY
     Dosage: 80MG DAILY PO 2 TO 3 WEEKS
     Route: 048
     Dates: start: 20110325, end: 20110414
  2. FEBUXOSTAT [Suspect]
     Indication: ARTHRALGIA
     Dosage: 80MG DAILY PO 2 TO 3 WEEKS
     Route: 048
     Dates: start: 20110325, end: 20110414

REACTIONS (4)
  - DIARRHOEA [None]
  - DEHYDRATION [None]
  - RHABDOMYOLYSIS [None]
  - RENAL FAILURE ACUTE [None]
